FAERS Safety Report 6329199-7 (Version None)
Quarter: 2009Q3

REPORT INFORMATION
  Report Type: 
  Country: None (occurrence: None)
  Receive Date: 20090826
  Receipt Date: 20090814
  Transmission Date: 20100115
  Serious: Yes (Hospitalization)
  Sender: FDA-Public Use
  Company Number: GB-PFIZER INC-2009254972

PATIENT
  Age: 17 Year

DRUGS (1)
  1. SOMATROPIN [Suspect]
     Dosage: 1.00 MG, 1X/DAY
     Dates: start: 20090624

REACTIONS (2)
  - BRAIN NEOPLASM MALIGNANT [None]
  - CONVULSION [None]
